FAERS Safety Report 5065999-1 (Version None)
Quarter: 2006Q3

REPORT INFORMATION
  Report Type: 
  Country: None (occurrence: None)
  Receive Date: 20060731
  Receipt Date: 20060731
  Transmission Date: 20061208
  Serious: No
  Sender: FDA-Public Use
  Company Number: None

PATIENT
  Age: 76 Year
  Sex: Female
  Weight: 115.6672 kg

DRUGS (2)
  1. CALCITRIOL [Suspect]
     Indication: RENAL FAILURE CHRONIC
     Dosage: 1 PO QHS
     Route: 048
     Dates: start: 20060606
  2. CALCITRIOL [Suspect]
     Indication: RENAL FAILURE CHRONIC
     Dosage: 1 PO QHS
     Route: 048
     Dates: start: 20060701

REACTIONS (4)
  - ABDOMINAL PAIN [None]
  - NAUSEA [None]
  - THERAPEUTIC RESPONSE UNEXPECTED WITH DRUG SUBSTITUTION [None]
  - VOMITING [None]
